FAERS Safety Report 12465391 (Version 2)
Quarter: 2016Q3

REPORT INFORMATION
  Report Type: Spontaneous
  Country: US (occurrence: US)
  Receive Date: 20160614
  Receipt Date: 20160728
  Transmission Date: 20161109
  Serious: Yes (Hospitalization, Other)
  Sender: FDA-Public Use
  Company Number: US-ELI_LILLY_AND_COMPANY-US201606002548

PATIENT
  Sex: Male

DRUGS (4)
  1. SYNTHROID [Concomitant]
     Active Substance: LEVOTHYROXINE SODIUM
     Indication: PRODUCT USED FOR UNKNOWN INDICATION
     Dosage: UNK, UNKNOWN
     Route: 065
  2. ZYPREXA [Suspect]
     Active Substance: OLANZAPINE
     Indication: SCHIZOPHRENIA
     Dosage: UNK UNK, UNKNOWN
     Route: 048
     Dates: start: 2008
  3. ZYPREXA ZYDIS [Suspect]
     Active Substance: OLANZAPINE
     Indication: SCHIZOPHRENIA
     Dosage: UNK, UNKNOWN
     Route: 065
  4. ZYPREXA ZYDIS [Suspect]
     Active Substance: OLANZAPINE
     Dosage: 20 MG, UNKNOWN
     Route: 065

REACTIONS (7)
  - Bacterial infection [Unknown]
  - Lymphoma [Unknown]
  - Gastrooesophageal reflux disease [Unknown]
  - Increased appetite [Unknown]
  - Diabetes mellitus [Unknown]
  - Gastroenteritis [Unknown]
  - Weight increased [Unknown]

NARRATIVE: CASE EVENT DATE: 2012
